FAERS Safety Report 13055632 (Version 2)
Quarter: 2017Q2

REPORT INFORMATION
  Report Type: Spontaneous
  Country: US (occurrence: US)
  Receive Date: 20161222
  Receipt Date: 20170405
  Transmission Date: 20170830
  Serious: No
  Sender: FDA-Public Use
  Company Number: US-CELGENEUS-USA-2016124134

PATIENT
  Sex: Male

DRUGS (4)
  1. THALOMID [Suspect]
     Active Substance: THALIDOMIDE
     Indication: ARTERIOVENOUS MALFORMATION
  2. AMIODARONE [Concomitant]
     Active Substance: AMIODARONE
     Indication: ATRIAL FIBRILLATION
     Dosage: 200 MILLIGRAM
     Route: 065
     Dates: start: 20141231
  3. THALOMID [Suspect]
     Active Substance: THALIDOMIDE
     Indication: VASCULAR MALFORMATION
     Dosage: 100MG
     Route: 048
     Dates: start: 20150207
  4. THALOMID [Suspect]
     Active Substance: THALIDOMIDE
     Indication: OFF LABEL USE
     Dosage: 50MG
     Route: 048
     Dates: start: 201503, end: 20161217

REACTIONS (1)
  - International normalised ratio decreased [Unknown]
